FAERS Safety Report 11913764 (Version 1)
Quarter: 2016Q1

REPORT INFORMATION
  Report Type: Spontaneous
  Country: NO (occurrence: NO)
  Receive Date: 20160113
  Receipt Date: 20160113
  Transmission Date: 20160526
  Serious: Yes (Other)
  Sender: FDA-Public Use
  Company Number: NO-ASTELLAS-2016US000929

PATIENT
  Sex: Male

DRUGS (1)
  1. TACROLIMUS. [Suspect]
     Active Substance: TACROLIMUS
     Indication: LIVER TRANSPLANT
     Dosage: UNK, UNKNOWN FREQ.
     Route: 048

REACTIONS (4)
  - Dysphagia [Unknown]
  - Wrong technique in product usage process [Unknown]
  - Tongue paralysis [Unknown]
  - Speech disorder [Unknown]
